FAERS Safety Report 19080459 (Version 1)
Quarter: 2021Q1

REPORT INFORMATION
  Report Type: Spontaneous
  Country: DE (occurrence: DE)
  Receive Date: 20210331
  Receipt Date: 20210331
  Transmission Date: 20210420
  Serious: Yes (Other)
  Sender: FDA-Public Use
  Company Number: NVSC2021DE068149

PATIENT
  Sex: Male

DRUGS (14)
  1. VINCRISTINE [Suspect]
     Active Substance: VINCRISTINE
     Indication: NEUROBLASTOMA
     Dosage: UNK
     Route: 065
     Dates: start: 20200601, end: 2020
  2. VINCRISTINE [Suspect]
     Active Substance: VINCRISTINE
     Dosage: UNK
     Route: 065
     Dates: start: 20200721, end: 2020
  3. VINDESINE [Suspect]
     Active Substance: VINDESINE
     Indication: NEUROBLASTOMA
     Dosage: UNK
     Route: 065
     Dates: start: 20200626, end: 2020
  4. DOXORUBICIN [Suspect]
     Active Substance: DOXORUBICIN
     Dosage: UNK
     Route: 065
     Dates: start: 20200721, end: 2020
  5. DOXORUBICIN [Suspect]
     Active Substance: DOXORUBICIN
     Indication: NEUROBLASTOMA
     Dosage: UNK
     Route: 065
     Dates: start: 20200601, end: 2020
  6. ETOPOSIDE. [Suspect]
     Active Substance: ETOPOSIDE
     Dosage: UNK
     Route: 065
     Dates: start: 20200815, end: 2020
  7. IFOSFAMIDE. [Suspect]
     Active Substance: IFOSFAMIDE
     Indication: NEUROBLASTOMA
     Dosage: UNK
     Route: 065
     Dates: start: 20200721, end: 2020
  8. VINDESINE [Suspect]
     Active Substance: VINDESINE
     Dosage: UNK
     Route: 065
     Dates: start: 20200815, end: 2020
  9. MESNA. [Suspect]
     Active Substance: MESNA
     Indication: NEUROBLASTOMA
     Dosage: UNK
     Route: 065
     Dates: start: 20200601, end: 2020
  10. CYCLOPHOSPHAMIDE. [Suspect]
     Active Substance: CYCLOPHOSPHAMIDE
     Indication: NEUROBLASTOMA
     Dosage: UNK
     Route: 065
     Dates: start: 20200601, end: 2020
  11. CARBOPLATIN. [Suspect]
     Active Substance: CARBOPLATIN
     Indication: NEUROBLASTOMA
     Dosage: UNK
     Route: 065
     Dates: start: 20200626, end: 2020
  12. ETOPOSIDE. [Suspect]
     Active Substance: ETOPOSIDE
     Indication: NEUROBLASTOMA
     Dosage: UNK
     Route: 065
     Dates: start: 20200626, end: 2020
  13. CISPLATIN. [Suspect]
     Active Substance: CISPLATIN
     Indication: NEUROBLASTOMA
     Dosage: UNK
     Route: 065
     Dates: start: 20200815, end: 2020
  14. DACARBAZINE. [Suspect]
     Active Substance: DACARBAZINE
     Indication: NEUROBLASTOMA
     Dosage: UNK
     Route: 065
     Dates: start: 20200721, end: 2020

REACTIONS (6)
  - Neuroblastoma recurrent [Unknown]
  - Blindness [Unknown]
  - Pneumonia klebsiella [Unknown]
  - Resorption bone increased [Unknown]
  - Product packaging issue [Unknown]
  - Malignant neoplasm progression [Unknown]

NARRATIVE: CASE EVENT DATE: 2020
